FAERS Safety Report 12830910 (Version 2)
Quarter: 2018Q3

REPORT INFORMATION
  Report Type: Spontaneous
  Country: US (occurrence: US)
  Receive Date: 20161007
  Receipt Date: 20180925
  Transmission Date: 20181010
  Serious: No
  Sender: FDA-Public Use
  Company Number: US-009507513-1609USA013965

PATIENT

DRUGS (2)
  1. DEXAMETHASONE. [Suspect]
     Active Substance: DEXAMETHASONE
  2. IVEMEND [Suspect]
     Active Substance: FOSAPREPITANT DIMEGLUMINE
     Route: 042

REACTIONS (3)
  - No adverse event [Unknown]
  - Product preparation error [Unknown]
  - Wrong drug administered [Unknown]
